FAERS Safety Report 7497759-6 (Version None)
Quarter: 2011Q2

REPORT INFORMATION
  Report Type: 
  Country: None (occurrence: None)
  Receive Date: 20110523
  Receipt Date: 20110513
  Transmission Date: 20111010
  Serious: Yes (Life-Threatening, Hospitalization)
  Sender: FDA-Public Use
  Company Number: JP-AMGEN-US404581

PATIENT
  Age: 71 Year
  Sex: Female
  Weight: 62 kg

DRUGS (9)
  1. RHEUMATREX [Concomitant]
     Dosage: 2 MG, 2X/WEEK
     Dates: start: 20080603, end: 20090713
  2. PREDNISOLONE [Concomitant]
     Dosage: 3 MG, 1X/DAY
     Route: 048
     Dates: start: 20080716, end: 20090713
  3. ISONIAZID [Concomitant]
     Indication: PROPHYLAXIS
     Dosage: 100 MG, 2X/DAY
     Route: 048
     Dates: start: 20080519, end: 20090616
  4. ENBREL [Suspect]
     Dosage: 25 MG, 2 TIMES/WK (SOLUTION FOR INJECTION)
     Route: 058
     Dates: start: 20080821, end: 20090713
  5. RHEUMATREX [Concomitant]
     Indication: RHEUMATOID ARTHRITIS
     Dosage: 6 MG, WEEKLY
     Route: 048
     Dates: start: 20080124, end: 20080528
  6. LENDORMIN [Concomitant]
     Dosage: UNK
     Route: 048
  7. ENBREL [Suspect]
     Indication: RHEUMATOID ARTHRITIS
     Dosage: 25 MG, 2 TIMES/WK (LYOPHILIZED POWDER)
     Route: 058
     Dates: start: 20080419, end: 20080624
  8. PREDNISOLONE [Concomitant]
     Dosage: 4 MG, 1X/DAY
     Route: 048
     Dates: start: 20060621, end: 20080715
  9. ENBREL [Suspect]
     Dosage: 25 MG, 2 TIMES/WK (SOLUTION FOR INJECTION)
     Route: 058
     Dates: start: 20080730, end: 20080818

REACTIONS (2)
  - GASTROINTESTINAL NECROSIS [None]
  - VOLVULUS OF SMALL BOWEL [None]
